FAERS Safety Report 24417942 (Version 3)
Quarter: 2025Q1

REPORT INFORMATION
  Report Type: Spontaneous
  Country: US (occurrence: US)
  Receive Date: 20241009
  Receipt Date: 20250303
  Transmission Date: 20250409
  Serious: No
  Sender: BIOMARIN
  Company Number: US-SA-2024SA285387

PATIENT

DRUGS (1)
  1. LARONIDASE [Suspect]
     Active Substance: LARONIDASE
     Indication: Mucopolysaccharidosis I
     Dosage: 5.8 (UNITS NOT GIVEN), QW
     Route: 042
     Dates: start: 202409

REACTIONS (1)
  - Nasopharyngitis [Recovered/Resolved]

NARRATIVE: CASE EVENT DATE: 20240101
